FAERS Safety Report 9900583 (Version 3)
Quarter: 2014Q2

REPORT INFORMATION
  Report Type: Spontaneous
  Country: US (occurrence: US)
  Receive Date: 20140217
  Receipt Date: 20140620
  Transmission Date: 20141212
  Serious: Yes (Hospitalization)
  Sender: FDA-Public Use
  Company Number: US-BIOGENIDEC-2014BI013140

PATIENT
  Age: 55 Year
  Sex: Female

DRUGS (9)
  1. TECFIDERA [Suspect]
     Indication: MULTIPLE SCLEROSIS
     Route: 048
     Dates: start: 20130822
  2. TECFIDERA [Suspect]
     Indication: MULTIPLE SCLEROSIS
     Route: 048
  3. TECFIDERA [Suspect]
     Indication: MULTIPLE SCLEROSIS
     Dates: start: 20140109
  4. PROTONIX DR [Concomitant]
  5. ZOFRAN [Concomitant]
  6. ZANTAC [Concomitant]
  7. SOLU-MEDROL [Concomitant]
  8. BACLOFEN [Concomitant]
  9. PROZAC [Concomitant]

REACTIONS (7)
  - Gallbladder operation [Recovered/Resolved]
  - Nausea [Unknown]
  - Abdominal discomfort [Unknown]
  - Pain [Unknown]
  - Malaise [Unknown]
  - Hyperchlorhydria [Recovered/Resolved]
  - Vomiting [Recovered/Resolved]
